FAERS Safety Report 17590048 (Version 1)
Quarter: 2020Q1

REPORT INFORMATION
  Report Type: Spontaneous
  Country: US (occurrence: US)
  Receive Date: 20200326
  Receipt Date: 20200326
  Transmission Date: 20200409
  Serious: Yes (Other)
  Sender: FDA-Public Use
  Company Number: None

PATIENT
  Age: 68 Year
  Sex: Male
  Weight: 72.5 kg

DRUGS (12)
  1. ERTAPENEM. [Concomitant]
     Active Substance: ERTAPENEM SODIUM
     Dates: start: 20200203, end: 20200214
  2. FLUCONAZOLE. [Concomitant]
     Active Substance: FLUCONAZOLE
  3. MAVYRET [Suspect]
     Active Substance: GLECAPREVIR\PIBRENTASVIR
     Indication: VIRAEMIA
     Route: 048
     Dates: start: 20200117, end: 20200205
  4. TACROLIMUS. [Concomitant]
     Active Substance: TACROLIMUS
  5. TAMSULOSIN [Concomitant]
     Active Substance: TAMSULOSIN
  6. MAVYRET [Suspect]
     Active Substance: GLECAPREVIR\PIBRENTASVIR
     Indication: HEPATITIS C
     Route: 048
     Dates: start: 20200117, end: 20200205
  7. PANTOPRAZOLE [Concomitant]
     Active Substance: PANTOPRAZOLE
  8. PREDNISONE. [Concomitant]
     Active Substance: PREDNISONE
  9. URSODIOL. [Concomitant]
     Active Substance: URSODIOL
  10. AMLODIPINE [Concomitant]
     Active Substance: AMLODIPINE BESYLATE
  11. HUMALOG [Concomitant]
     Active Substance: INSULIN LISPRO
  12. ATOVAQUONE. [Concomitant]
     Active Substance: ATOVAQUONE

REACTIONS (5)
  - Escherichia sepsis [None]
  - Escherichia bacteraemia [None]
  - Transmission of an infectious agent via transplant [None]
  - Blood bilirubin increased [None]
  - Renal transplant [None]

NARRATIVE: CASE EVENT DATE: 20200205
